FAERS Safety Report 24213807 (Version 1)
Quarter: 2024Q3

REPORT INFORMATION
  Report Type: Spontaneous
  Country: US (occurrence: None)
  Receive Date: 20240814
  Receipt Date: 20240814
  Transmission Date: 20241016
  Serious: Yes (unspecified)
  Sender: Public
  Company Number: None

PATIENT
  Age: 77 Year
  Sex: Male
  Weight: 75.6 kg

DRUGS (1)
  1. PREDNISONE [Suspect]
     Active Substance: PREDNISONE
     Indication: Upper-airway cough syndrome
     Dates: start: 20240728, end: 20240808

REACTIONS (6)
  - Abdominal pain upper [None]
  - Melaena [None]
  - Urinary incontinence [None]
  - Urinary hesitation [None]
  - Dysuria [None]
  - Acne [None]

NARRATIVE: CASE EVENT DATE: 20240808
